FAERS Safety Report 7526130-3 (Version None)
Quarter: 2011Q2

REPORT INFORMATION
  Report Type: 
  Country: None (occurrence: None)
  Receive Date: 20110606
  Receipt Date: 20110525
  Transmission Date: 20111010
  Serious: Yes (Hospitalization)
  Sender: FDA-Public Use
  Company Number: DE-TYCO HEALTHCARE/MALLINCKRODT-T201100741

PATIENT
  Sex: Female
  Weight: 85 kg

DRUGS (18)
  1. SORMODREN [Concomitant]
     Dosage: 1-0-1
  2. MOVICOL                            /01053601/ [Concomitant]
     Dosage: 1-1-1
  3. ACC LONG [Concomitant]
     Dosage: 1-0-0
  4. EXALGO [Suspect]
     Dosage: 8 MG + 8 MG + 8 MG, BID
  5. WOBENZYM                           /00598501/ [Concomitant]
     Dosage: 1-1-1
  6. BUSP [Concomitant]
     Dosage: IN 1 AS NECESSARY
     Route: 065
  7. EXALGO [Suspect]
     Indication: PAIN
     Dosage: 16 MG + 8 MG , BID
     Route: 048
  8. RABEPRAZOLE SODIUM [Concomitant]
     Dosage: 1 UNK, UNK
  9. LEXOTANIL [Concomitant]
     Dosage: 6 MG 1-0-1
  10. DOXEPIN [Concomitant]
     Dosage: 25 MG, QD
     Route: 065
  11. ZOPICLONE [Concomitant]
     Dosage: 7.5 MG, 0-0-2
  12. BACLOFEN [Concomitant]
     Dosage: 25 MG, QD
     Route: 065
  13. TELMISARTAN [Concomitant]
     Dosage: 0.5 UNK, UNK
  14. FEBUXOSTAT [Concomitant]
     Dosage: 80 MG
  15. FUROSEMID                          /00032601/ [Concomitant]
     Dosage: 80 MG-40 MG
  16. ASPIRIN [Concomitant]
     Dosage: 1-0-0
  17. MAGNESIUM SULFATE [Concomitant]
     Dosage: 200 MG 1-0-1
  18. ANTIBIOTICS [Concomitant]
     Dosage: UNK

REACTIONS (7)
  - ANKLE FRACTURE [None]
  - DISORIENTATION [None]
  - DRUG LEVEL INCREASED [None]
  - OVERDOSE [None]
  - DRUG PRESCRIBING ERROR [None]
  - CONFUSIONAL STATE [None]
  - FALL [None]
